FAERS Safety Report 20038103 (Version 1)
Quarter: 2021Q4

REPORT INFORMATION
  Report Type: Spontaneous
  Country: CA (occurrence: None)
  Receive Date: 20211105
  Receipt Date: 20211105
  Transmission Date: 20220303
  Serious: Yes (Other)
  Sender: FDA-Public Use
  Company Number: CA-Orion Corporation ORION PHARMA-TREX2017-1247

PATIENT
  Age: 35 Year
  Sex: Female
  Weight: 65 kg

DRUGS (1)
  1. METHOTREXATE [Suspect]
     Active Substance: METHOTREXATE
     Indication: Rheumatoid arthritis
     Route: 048

REACTIONS (12)
  - Rheumatoid arthritis [Not Recovered/Not Resolved]
  - Mental disorder [Unknown]
  - Amnesia [Unknown]
  - Nausea [Unknown]
  - Feeling abnormal [Unknown]
  - Arthralgia [Unknown]
  - Insomnia [Unknown]
  - Back pain [Unknown]
  - Sitting disability [Unknown]
  - Dysstasia [Unknown]
  - Gait disturbance [Unknown]
  - Pain [Unknown]
